FAERS Safety Report 8292887-X (Version None)
Quarter: 2012Q2

REPORT INFORMATION
  Report Type: 
  Country: None (occurrence: None)
  Receive Date: 20120417
  Receipt Date: 20111125
  Transmission Date: 20120825
  Serious: No
  Sender: FDA-Public Use
  Company Number: US-ASTRAZENECA-2011SE71971

PATIENT
  Sex: Male
  Weight: 98 kg

DRUGS (3)
  1. NEXIUM [Suspect]
     Indication: GASTROOESOPHAGEAL REFLUX DISEASE
     Route: 048
  2. NEXIUM [Suspect]
     Route: 048
     Dates: start: 20111123
  3. NEXIUM [Suspect]
     Route: 048
     Dates: start: 20111118

REACTIONS (6)
  - NASAL CONGESTION [None]
  - DRY THROAT [None]
  - UPPER-AIRWAY COUGH SYNDROME [None]
  - DRUG PRESCRIBING ERROR [None]
  - THROAT IRRITATION [None]
  - INAPPROPRIATE SCHEDULE OF DRUG ADMINISTRATION [None]
